FAERS Safety Report 6546743-5 (Version None)
Quarter: 2010Q1

REPORT INFORMATION
  Report Type: 
  Country: None (occurrence: None)
  Receive Date: 20100119
  Receipt Date: 20100104
  Transmission Date: 20100710
  Serious: Yes (Death)
  Sender: FDA-Public Use
  Company Number: 2010VX000117

PATIENT
  Age: 59 Year
  Sex: Male

DRUGS (5)
  1. BUTALBITAL [Suspect]
     Indication: DRUG USE FOR UNKNOWN INDICATION
  2. MORPHINE [Suspect]
     Indication: DRUG USE FOR UNKNOWN INDICATION
  3. OPIOID [Suspect]
     Indication: DRUG USE FOR UNKNOWN INDICATION
  4. OXYCODONE [Suspect]
     Indication: DRUG USE FOR UNKNOWN INDICATION
  5. BENZODIAZEPINE [Suspect]
     Indication: DRUG USE FOR UNKNOWN INDICATION

REACTIONS (1)
  - COMPLETED SUICIDE [None]
